FAERS Safety Report 19408181 (Version 2)
Quarter: 2021Q2

REPORT INFORMATION
  Report Type: Spontaneous
  Country: MX (occurrence: MX)
  Receive Date: 20210611
  Receipt Date: 20210629
  Transmission Date: 20210717
  Serious: Yes (Other)
  Sender: FDA-Public Use
  Company Number: MX-UCBSA-2021027387

PATIENT
  Age: 66 Year
  Sex: Female
  Weight: 62 kg

DRUGS (16)
  1. NUBRENZA [Suspect]
     Active Substance: ROTIGOTINE
     Indication: PARKINSON^S DISEASE
     Dosage: 2 MILLIGRAM, ONCE DAILY (QD)
     Route: 062
     Dates: start: 20201218
  2. GABAPENTIN. [Concomitant]
     Active Substance: GABAPENTIN
     Indication: DEPRESSION
     Dosage: UNK
  3. CELESTAMINE NS [Concomitant]
     Indication: PRODUCT USED FOR UNKNOWN INDICATION
     Dosage: 1 DOSAGE FORM, 2X/DAY (BID)
     Route: 048
  4. CORTISONE [Concomitant]
     Active Substance: CORTISONE
     Indication: SKIN PAPILLOMA
  5. PK?MERZ [AMANTADINE] [Concomitant]
     Indication: PARKINSON^S DISEASE
  6. CORTISONE [Concomitant]
     Active Substance: CORTISONE
     Indication: BURNING SENSATION
  7. SERTRALINE [Concomitant]
     Active Substance: SERTRALINE HYDROCHLORIDE
     Indication: DEPRESSION
  8. ZATHELO [Concomitant]
     Indication: BLOOD CHOLESTEROL INCREASED
  9. NABILONE [Concomitant]
     Active Substance: NABILONE
     Indication: HYPERTENSION
  10. RASAGILINE. [Concomitant]
     Active Substance: RASAGILINE
     Indication: PARKINSON^S DISEASE
  11. HYDROXYZINE [Concomitant]
     Active Substance: HYDROXYZINE HYDROCHLORIDE
     Indication: DEPRESSION
     Dosage: UNK
  12. IVERMECTIN. [Concomitant]
     Active Substance: IVERMECTIN
     Indication: PRODUCT USE IN UNAPPROVED INDICATION
  13. VITAMIN D [ERGOCALCIFEROL] [Concomitant]
     Active Substance: ERGOCALCIFEROL
     Indication: PARKINSON^S DISEASE
  14. PROBIOTICS NOS [Concomitant]
     Active Substance: PROBIOTICS NOS
     Indication: GASTRIC DISORDER
  15. NUBRENZA [Suspect]
     Active Substance: ROTIGOTINE
     Dosage: 2 MILLIGRAM, ONCE DAILY (QD)
     Route: 062
  16. ROSUVASTATIN. [Concomitant]
     Active Substance: ROSUVASTATIN
     Indication: HYPERTENSION

REACTIONS (14)
  - Underdose [Unknown]
  - Cholesteatoma [Not Recovered/Not Resolved]
  - Mastoiditis [Not Recovered/Not Resolved]
  - Cardiovascular disorder [Recovering/Resolving]
  - Hallucination, visual [Not Recovered/Not Resolved]
  - Burning sensation [Not Recovered/Not Resolved]
  - Rhinorrhoea [Not Recovered/Not Resolved]
  - Off label use [Unknown]
  - Device adhesion issue [Unknown]
  - Dermatitis [Not Recovered/Not Resolved]
  - Application site erythema [Not Recovered/Not Resolved]
  - Contusion [Not Recovered/Not Resolved]
  - Feeling abnormal [Not Recovered/Not Resolved]
  - Skin papilloma [Not Recovered/Not Resolved]

NARRATIVE: CASE EVENT DATE: 202012
